FAERS Safety Report 5026053-8 (Version None)
Quarter: 2006Q2

REPORT INFORMATION
  Report Type: 
  Country: None (occurrence: None)
  Receive Date: 20060608
  Receipt Date: 19960902
  Transmission Date: 20061013
  Serious: No
  Sender: FDA-Public Use
  Company Number: 96-09-0011

PATIENT
  Sex: Female
  Weight: 62 kg

DRUGS (5)
  1. ETHYOL [Suspect]
     Indication: ADVERSE DRUG REACTION
     Dosage: INTRAVENOUS
     Route: 042
     Dates: start: 19960827, end: 19960827
  2. TORECAN [Concomitant]
  3. DEXTROSE 5% WATER [Concomitant]
  4. DEXAMETHASONE TAB [Concomitant]
  5. HISTAMINE-3 ANTAGONIST (NOS) [Concomitant]

REACTIONS (4)
  - AGITATION [None]
  - SOMNOLENCE [None]
  - SYNCOPE VASOVAGAL [None]
  - VERTIGO [None]
